FAERS Safety Report 14606814 (Version 1)
Quarter: 2018Q1

REPORT INFORMATION
  Report Type: Report from Study
  Country: US (occurrence: US)
  Receive Date: 20180307
  Receipt Date: 20180307
  Transmission Date: 20180509
  Serious: No
  Sender: FDA-Public Use
  Company Number: US-SHIRE-US201808491

PATIENT
  Age: 71 Year
  Sex: Female
  Weight: 53.52 kg

DRUGS (3)
  1. XIIDRA [Suspect]
     Active Substance: LIFITEGRAST
     Indication: DRY EYE
     Dosage: 1 GTT, 2X/DAY:BID
     Route: 047
     Dates: start: 20180214, end: 20180223
  2. LOSARTAN. [Concomitant]
     Active Substance: LOSARTAN
     Indication: HYPERTENSION
  3. LEVOTHYROXIN [Concomitant]
     Active Substance: LEVOTHYROXINE
     Indication: PROPHYLAXIS

REACTIONS (6)
  - Eye movement disorder [Recovered/Resolved]
  - Instillation site pain [Recovered/Resolved]
  - Eye discharge [Recovered/Resolved]
  - Vision blurred [Recovered/Resolved]
  - Superficial injury of eye [Recovered/Resolved]
  - Eye disorder [Recovered/Resolved]

NARRATIVE: CASE EVENT DATE: 20180221
